FAERS Safety Report 7574187-6 (Version None)
Quarter: 2011Q2

REPORT INFORMATION
  Report Type: 
  Country: None (occurrence: None)
  Receive Date: 20110627
  Receipt Date: 20110620
  Transmission Date: 20111010
  Serious: Yes (Death)
  Sender: FDA-Public Use
  Company Number: PHHY2008DE37539

PATIENT
  Age: 81 Year
  Sex: Female

DRUGS (9)
  1. OCTREOTIDE ACETATE [Concomitant]
     Dosage: 30 MG, QMO
  2. BISOPROLOL [Concomitant]
  3. EUTHYROX [Concomitant]
  4. SANDOSTATIN LAR [Suspect]
     Indication: ACROMEGALY
     Dosage: 30 MG, UNK
     Route: 030
     Dates: start: 20070201, end: 20100503
  5. RAMIPRIL [Concomitant]
  6. FUROSEMIDE [Concomitant]
     Dosage: 10 MG, QMO
  7. BUPRENORPHINE [Concomitant]
     Dosage: 20 UG, QW
  8. AMLODIPINE [Concomitant]
     Dosage: 10 MG, UNK
  9. PANTOPRAZOLE [Concomitant]
     Dosage: 20 MG, UNK

REACTIONS (10)
  - PNEUMONIA [None]
  - FALL [None]
  - CHEST PAIN [None]
  - ACROMEGALY [None]
  - FLATULENCE [None]
  - CARDIAC FAILURE [None]
  - DIARRHOEA [None]
  - SKIN DISCOLOURATION [None]
  - PERIPHERAL COLDNESS [None]
  - ARTERIAL DISORDER [None]
